FAERS Safety Report 20895848 (Version 1)
Quarter: 2022Q2

REPORT INFORMATION
  Report Type: Spontaneous
  Country: US (occurrence: None)
  Receive Date: 20220529
  Receipt Date: 20220529
  Transmission Date: 20220721
  Serious: Yes (Disabling)
  Sender: FDA-Public Use
  Company Number: None

PATIENT
  Age: 79 Year
  Sex: Male
  Weight: 59.4 kg

DRUGS (11)
  1. KERENDIA [Suspect]
     Active Substance: FINERENONE
     Indication: Albuminuria
     Dosage: OTHER QUANTITY : 30 TABLET(S);?FREQUENCY : DAILY;?
     Route: 048
     Dates: start: 20220126, end: 20220326
  2. ISOSORBIDE DINITRATE [Concomitant]
     Active Substance: ISOSORBIDE DINITRATE
  3. Hydralazine25mg [Concomitant]
  4. TORSEMIDE [Concomitant]
     Active Substance: TORSEMIDE
  5. ALLOPURINOL [Concomitant]
     Active Substance: ALLOPURINOL
  6. RAMIPRIL [Concomitant]
     Active Substance: RAMIPRIL
  7. ATORVASTATIN CALCIUM [Concomitant]
     Active Substance: ATORVASTATIN CALCIUM
  8. Metoprolol Succinate ER [Concomitant]
  9. AMLODIPINE BESYLATE [Concomitant]
     Active Substance: AMLODIPINE BESYLATE
  10. JARDIANCE [Concomitant]
     Active Substance: EMPAGLIFLOZIN
  11. Latanpprost [Concomitant]

REACTIONS (1)
  - Glomerular filtration rate decreased [None]

NARRATIVE: CASE EVENT DATE: 20220202
